FAERS Safety Report 24991825 (Version 1)
Quarter: 2025Q1

REPORT INFORMATION
  Report Type: Spontaneous
  Country: CN (occurrence: CN)
  Receive Date: 20250220
  Receipt Date: 20250220
  Transmission Date: 20250409
  Serious: Yes (Hospitalization, Other)
  Sender: PURDUE
  Company Number: CN-NAPPMUNDI-GBR-2025-0123567

PATIENT
  Age: 60 Year
  Sex: Male
  Weight: 56 kg

DRUGS (3)
  1. OXYCODONE HYDROCHLORIDE [Suspect]
     Active Substance: OXYCODONE HYDROCHLORIDE
     Indication: Pain
     Dosage: 160 MILLIGRAM, BID
     Route: 048
     Dates: start: 20250205, end: 20250210
  2. OXYCODONE HYDROCHLORIDE [Suspect]
     Active Substance: OXYCODONE HYDROCHLORIDE
     Dosage: 20 MILLIGRAM, BID
     Route: 048
     Dates: start: 20250205, end: 20250210
  3. OXYCODONE HYDROCHLORIDE [Suspect]
     Active Substance: OXYCODONE HYDROCHLORIDE
     Dosage: 80 MILLIGRAM, BID
     Route: 048
     Dates: start: 202502

REACTIONS (6)
  - Mental disorder [Recovering/Resolving]
  - Disorganised speech [Recovering/Resolving]
  - Persecutory delusion [Recovering/Resolving]
  - Abnormal behaviour [Recovering/Resolving]
  - Somnolence [Unknown]
  - Pyrexia [Recovered/Resolved]

NARRATIVE: CASE EVENT DATE: 20250207
